FAERS Safety Report 11747242 (Version 2)
Quarter: 2016Q1

REPORT INFORMATION
  Report Type: Report from Study
  Country: US (occurrence: US)
  Receive Date: 20151117
  Receipt Date: 20160215
  Transmission Date: 20160525
  Serious: Yes (Hospitalization)
  Sender: FDA-Public Use
  Company Number: US-ABBVIE-15P-163-1345045-00

PATIENT
  Sex: Male

DRUGS (2)
  1. HUMIRA [Suspect]
     Active Substance: ADALIMUMAB
     Indication: MATERNAL EXPOSURE TIMING UNSPECIFIED
     Route: 064
  2. HUMIRA [Suspect]
     Active Substance: ADALIMUMAB
     Indication: MATERNAL EXPOSURE TIMING UNSPECIFIED

REACTIONS (8)
  - Hypothermia [Recovered/Resolved]
  - Foetal exposure during pregnancy [Unknown]
  - Infection [Recovered/Resolved]
  - Hypophagia [Recovered/Resolved]
  - Foetal distress syndrome [Recovered/Resolved]
  - Low birth weight baby [Recovering/Resolving]
  - Infantile spitting up [Not Recovered/Not Resolved]
  - Premature baby [Not Recovered/Not Resolved]

NARRATIVE: CASE EVENT DATE: 201509
